FAERS Safety Report 7995741-3 (Version None)
Quarter: 2011Q4

REPORT INFORMATION
  Report Type: 
  Country: None (occurrence: None)
  Receive Date: 20111220
  Receipt Date: 20111212
  Transmission Date: 20120403
  Serious: Yes (Other)
  Sender: FDA-Public Use
  Company Number: US-BAYER-2011-120257

PATIENT
  Age: 45 Year
  Sex: Male
  Weight: 68 kg

DRUGS (1)
  1. ALEVE (CAPLET) [Suspect]
     Dosage: UNK, ONCE
     Route: 048
     Dates: start: 20111211

REACTIONS (4)
  - OEDEMA MOUTH [None]
  - SWELLING FACE [None]
  - EYE SWELLING [None]
  - HYPERSENSITIVITY [None]
